FAERS Safety Report 5263087-2 (Version None)
Quarter: 2007Q1

REPORT INFORMATION
  Report Type: 
  Country: None (occurrence: None)
  Receive Date: 20070312
  Receipt Date: 20070221
  Transmission Date: 20070707
  Serious: Yes (Hospitalization, Other)
  Sender: FDA-Public Use
  Company Number: US-PFIZER INC-2006141603

PATIENT
  Sex: Male
  Weight: 127 kg

DRUGS (1)
  1. CELEBREX [Suspect]
     Indication: BACK PAIN
     Route: 048

REACTIONS (2)
  - BLINDNESS [None]
  - CEREBROVASCULAR ACCIDENT [None]
